FAERS Safety Report 4828268-8 (Version None)
Quarter: 2005Q4

REPORT INFORMATION
  Report Type: 
  Country: None (occurrence: None)
  Receive Date: 20051114
  Receipt Date: 20051114
  Transmission Date: 20060501
  Serious: No
  Sender: FDA-Public Use
  Company Number: None

PATIENT
  Sex: Male
  Weight: 72.5755 kg

DRUGS (6)
  1. JANTOVEN [Suspect]
     Indication: HEART VALVE REPLACEMENT
     Dosage: 2.5 MG ON 3 DAYS/WK PO 5 MG ON 2 DAYS/ WK
     Route: 048
     Dates: start: 20050927, end: 20051027
  2. VERAPAMIL [Concomitant]
  3. MONOPRIL HCL [Concomitant]
  4. BETAPACE [Concomitant]
  5. TRAVATAN [Concomitant]
  6. TIMOPTIC [Concomitant]

REACTIONS (2)
  - INTERNATIONAL NORMALISED RATIO INCREASED [None]
  - THERAPEUTIC RESPONSE UNEXPECTED WITH DRUG SUBSTITUTION [None]
